FAERS Safety Report 5738974-9 (Version None)
Quarter: 2008Q2

REPORT INFORMATION
  Report Type: 
  Country: None (occurrence: None)
  Receive Date: 20080515
  Receipt Date: 20080428
  Transmission Date: 20081010
  Serious: Yes (Life-Threatening)
  Sender: FDA-Public Use
  Company Number: AU-ASTRAZENECA-2008AP01408

PATIENT
  Age: 32643 Day
  Sex: Female

DRUGS (6)
  1. NAROPIN [Suspect]
     Indication: NERVE BLOCK
     Route: 053
     Dates: start: 20080209, end: 20080209
  2. ALLOPURINOL [Concomitant]
     Indication: GOUT
  3. INDAPAMIDE [Concomitant]
     Indication: HYPERTENSION
  4. RABEPRAZOLE SODIUM [Concomitant]
     Indication: GASTROOESOPHAGEAL REFLUX DISEASE
  5. TIMOLOL MALEATE [Concomitant]
     Indication: GLAUCOMA
     Route: 047
  6. PILOCARPINE [Concomitant]
     Indication: GLAUCOMA
     Route: 047

REACTIONS (5)
  - ASPHYXIA [None]
  - CYANOSIS [None]
  - GRAND MAL CONVULSION [None]
  - METABOLIC ACIDOSIS [None]
  - SOMNOLENCE [None]
